FAERS Safety Report 5979279-0 (Version None)
Quarter: 2008Q4

REPORT INFORMATION
  Report Type: 
  Country: None (occurrence: None)
  Receive Date: 20081204
  Receipt Date: 20070201
  Transmission Date: 20090506
  Serious: No
  Sender: FDA-Public Use
  Company Number: US-ABBOTT-07P-163-0358474-00

PATIENT
  Sex: Male
  Weight: 85.352 kg

DRUGS (1)
  1. TRICOR [Suspect]
     Indication: BLOOD CHOLESTEROL INCREASED
     Route: 048
     Dates: start: 20050101

REACTIONS (4)
  - DIARRHOEA [None]
  - DIZZINESS [None]
  - PARAESTHESIA ORAL [None]
  - PERIPHERAL COLDNESS [None]
